FAERS Safety Report 9376904 (Version 3)
Quarter: 2013Q3

REPORT INFORMATION
  Report Type: Spontaneous
  Country: DK (occurrence: DK)
  Receive Date: 20130701
  Receipt Date: 20130725
  Transmission Date: 20140515
  Serious: Yes (Other)
  Sender: FDA-Public Use
  Company Number: DK-JNJFOC-20130615664

PATIENT
  Age: 68 Year
  Sex: Female
  Weight: 90 kg

DRUGS (3)
  1. REMICADE [Suspect]
     Indication: RHEUMATOID ARTHRITIS
     Dosage: EVERY 0, 2, 6 AND THEN 8 WEEKS
     Route: 042
     Dates: start: 20100603
  2. REMICADE [Suspect]
     Indication: RHEUMATOID ARTHRITIS
     Route: 042
     Dates: start: 20130306
  3. METHOTREXATE [Concomitant]
     Route: 065
     Dates: start: 20060808

REACTIONS (1)
  - Breast cancer [Not Recovered/Not Resolved]
